FAERS Safety Report 9141069 (Version 2)
Quarter: 2013Q3

REPORT INFORMATION
  Report Type: Spontaneous
  Country: GB (occurrence: GB)
  Receive Date: 20130305
  Receipt Date: 20130703
  Transmission Date: 20140515
  Serious: Yes (Other)
  Sender: FDA-Public Use
  Company Number: GB-ABBOTT-13P-167-1055916-00

PATIENT
  Age: 59 Year
  Sex: Male
  Weight: 103 kg

DRUGS (6)
  1. HUMIRA [Suspect]
     Indication: PSORIATIC ARTHROPATHY
     Dates: start: 200810, end: 201004
  2. METHOTREXATE [Concomitant]
     Indication: PSORIATIC ARTHROPATHY
     Route: 048
  3. METFORMIN [Concomitant]
     Indication: DIABETES MELLITUS
  4. SIMVASTATIN [Concomitant]
     Indication: BLOOD CHOLESTEROL
     Dosage: NOCTE
  5. FOLIC ACID [Concomitant]
     Indication: PRODUCT USED FOR UNKNOWN INDICATION
  6. TADALAFIL [Concomitant]
     Indication: ERECTILE DYSFUNCTION

REACTIONS (7)
  - Monoclonal immunoglobulin present [Unknown]
  - Hepatic cyst [Unknown]
  - Neoplasm malignant [Unknown]
  - Light chain analysis abnormal [Unknown]
  - Light chain analysis increased [Unknown]
  - Diabetes mellitus [Unknown]
  - Pruritus [Unknown]
